FAERS Safety Report 13142052 (Version 1)
Quarter: 2017Q1

REPORT INFORMATION
  Report Type: Report from Study
  Country: US (occurrence: US)
  Receive Date: 20170123
  Receipt Date: 20170123
  Transmission Date: 20170428
  Serious: Yes (Hospitalization)
  Sender: FDA-Public Use
  Company Number: US-MYLANLABS-2017M1003570

PATIENT

DRUGS (2)
  1. VANCOMYCIN [Suspect]
     Active Substance: VANCOMYCIN
     Indication: OSTEOMYELITIS
     Route: 051
  2. ERTAPENEM [Interacting]
     Active Substance: ERTAPENEM
     Indication: OSTEOMYELITIS
     Route: 051

REACTIONS (2)
  - Drug interaction [Recovered/Resolved]
  - Antibiotic level above therapeutic [Recovered/Resolved]
